FAERS Safety Report 18700587 (Version 1)
Quarter: 2021Q1

REPORT INFORMATION
  Report Type: Report from Study
  Country: US (occurrence: US)
  Receive Date: 20210105
  Receipt Date: 20210105
  Transmission Date: 20210419
  Serious: Yes (Life-Threatening, Other)
  Sender: FDA-Public Use
  Company Number: US-JNJFOC-20210102346

PATIENT
  Age: 39 Year
  Sex: Female

DRUGS (12)
  1. OXYCODONE/APAP [Concomitant]
     Active Substance: ACETAMINOPHEN\OXYCODONE HYDROCHLORIDE
  2. STELARA [Suspect]
     Active Substance: USTEKINUMAB
     Indication: CROHN^S DISEASE
     Route: 058
     Dates: start: 20180601
  3. HYDROCODONE BITARTRATE AND ACETAMINOPHEN [Concomitant]
     Active Substance: ACETAMINOPHEN\HYDROCODONE BITARTRATE
  4. TOPIRAMATE. [Concomitant]
     Active Substance: TOPIRAMATE
  5. STELARA [Suspect]
     Active Substance: USTEKINUMAB
  6. IBUPROFEN. [Concomitant]
     Active Substance: IBUPROFEN
  7. ONDANSETRON [Concomitant]
     Active Substance: ONDANSETRON
  8. AMITRIPTYLINE [Concomitant]
     Active Substance: AMITRIPTYLINE
  9. FAMOTIDINE. [Concomitant]
     Active Substance: FAMOTIDINE
  10. GABAPENTIN. [Concomitant]
     Active Substance: GABAPENTIN
  11. CEFDINIR. [Concomitant]
     Active Substance: CEFDINIR
  12. PROMETHAZINE [Concomitant]
     Active Substance: PROMETHAZINE HYDROCHLORIDE

REACTIONS (2)
  - Crohn^s disease [Not Recovered/Not Resolved]
  - Pneumonia [Recovered/Resolved]

NARRATIVE: CASE EVENT DATE: 20201215
